FAERS Safety Report 20434044 (Version 1)
Quarter: 2022Q1

REPORT INFORMATION
  Report Type: Report from Study
  Country: US (occurrence: US)
  Receive Date: 20220205
  Receipt Date: 20220205
  Transmission Date: 20220423
  Serious: Yes (Hospitalization)
  Sender: FDA-Public Use
  Company Number: US-NOVARTISPH-NVSC2022US017778

PATIENT
  Sex: Female

DRUGS (1)
  1. SCEMBLIX [Suspect]
     Active Substance: ASCIMINIB HYDROCHLORIDE
     Indication: Chronic myeloid leukaemia
     Dosage: 2 DOSAGE FORM, PER DAY
     Route: 065
     Dates: start: 20211121

REACTIONS (5)
  - Hypervolaemia [Unknown]
  - Oedema [Unknown]
  - Musculoskeletal pain [Unknown]
  - Fatigue [Unknown]
  - Asthenia [Unknown]
